FAERS Safety Report 20519793 (Version 1)
Quarter: 2022Q1

REPORT INFORMATION
  Report Type: Report from Study
  Country: DE (occurrence: DE)
  Receive Date: 20220225
  Receipt Date: 20220225
  Transmission Date: 20220423
  Serious: Yes (Other)
  Sender: FDA-Public Use
  Company Number: DE-PFIZER INC-2021320438

PATIENT
  Age: 39 Year
  Sex: Female
  Weight: 66.7 kg

DRUGS (2)
  1. ABROCITINIB [Suspect]
     Active Substance: ABROCITINIB
     Indication: Dermatitis atopic
     Dosage: UNK, ONCE A DAY (QD)
     Route: 048
     Dates: start: 20191127, end: 20210319
  2. NOVA-T [Concomitant]
     Indication: Contraception
     Dosage: UNK
     Dates: start: 20190702

REACTIONS (1)
  - Breast cancer metastatic [Unknown]

NARRATIVE: CASE EVENT DATE: 20210105
